FAERS Safety Report 9451572 (Version 1)
Quarter: 2013Q3

REPORT INFORMATION
  Report Type: Spontaneous
  Country: US (occurrence: US)
  Receive Date: 20130811
  Receipt Date: 20130811
  Transmission Date: 20140515
  Serious: No
  Sender: FDA-Public Use
  Company Number: US-009507513-1308USA002787

PATIENT
  Age: 79 Year
  Sex: Female

DRUGS (4)
  1. NASONEX [Suspect]
     Indication: SEASONAL ALLERGY
     Dosage: 1 SPRAY EACH SIDE ONCE A DAY
     Route: 045
     Dates: start: 20130801
  2. NASONEX [Suspect]
     Dosage: UNK
     Route: 045
     Dates: start: 20130523
  3. SYNTHROID [Concomitant]
  4. ATROVENT [Concomitant]

REACTIONS (3)
  - Pain [Recovered/Resolved]
  - Drug effect decreased [Recovered/Resolved]
  - Product quality issue [Unknown]
